FAERS Safety Report 8489882-4 (Version None)
Quarter: 2012Q3

REPORT INFORMATION
  Report Type: 
  Country: None (occurrence: None)
  Receive Date: 20120705
  Receipt Date: 20120627
  Transmission Date: 20120928
  Serious: Yes (Hospitalization, Other)
  Sender: FDA-Public Use
  Company Number: PHHO2012DE002071

PATIENT
  Sex: Female
  Weight: 62.1 kg

DRUGS (4)
  1. METHOTREXATE [Concomitant]
     Indication: JUVENILE ARTHRITIS
     Dosage: UNK
     Route: 048
     Dates: start: 20111118
  2. PREDNISOLONE [Concomitant]
     Indication: JUVENILE ARTHRITIS
     Dosage: UNK
     Dates: start: 20111130
  3. IBUPROFEN [Suspect]
     Dosage: 600 MG, UNK
     Dates: start: 20111130
  4. ACZ885 [Suspect]
     Indication: JUVENILE ARTHRITIS
     Dosage: 4 MG/KG, BID
     Route: 058
     Dates: start: 20100803

REACTIONS (3)
  - POISONING [None]
  - SUICIDE ATTEMPT [None]
  - ABNORMAL BEHAVIOUR [None]
